FAERS Safety Report 16651126 (Version 1)
Quarter: 2019Q3

REPORT INFORMATION
  Report Type: Spontaneous
  Country: US (occurrence: US)
  Receive Date: 20190731
  Receipt Date: 20190731
  Transmission Date: 20191004
  Serious: No
  Sender: FDA-Public Use
  Company Number: US-APOTEX-2019AP018065

PATIENT
  Sex: Male

DRUGS (8)
  1. CEFUROXIME AXETIL. [Concomitant]
     Active Substance: CEFUROXIME AXETIL
     Indication: STAPHYLOCOCCAL INFECTION
     Dosage: 1 DF, Q.AM
     Route: 065
  2. FENTANYL. [Suspect]
     Active Substance: FENTANYL
     Indication: ARTHRALGIA
  3. GABAPENTIN. [Concomitant]
     Active Substance: GABAPENTIN
     Indication: NEUROPATHY PERIPHERAL
     Dosage: UNK, TID, MORNING, LUNCH AND AT NIGHT
     Route: 065
  4. AMLODIPINE [Concomitant]
     Active Substance: AMLODIPINE BESYLATE
     Indication: HYPERTENSION
     Dosage: 1 DF, QD
     Route: 065
  5. CEFUROXIME AXETIL. [Concomitant]
     Active Substance: CEFUROXIME AXETIL
     Indication: INFECTION
     Dosage: 1 DF, QD
     Route: 065
  6. FENTANYL. [Suspect]
     Active Substance: FENTANYL
     Indication: ANALGESIC THERAPY
     Dosage: UNK, 1/72 HOURS
     Route: 065
  7. FENTANYL. [Suspect]
     Active Substance: FENTANYL
     Indication: BACK PAIN
  8. FENTANYL. [Suspect]
     Active Substance: FENTANYL
     Indication: NECK PAIN

REACTIONS (4)
  - Therapeutic product effect decreased [Unknown]
  - Product quality issue [Unknown]
  - Product adhesion issue [Unknown]
  - Product leakage [Unknown]
